FAERS Safety Report 7476770-5 (Version None)
Quarter: 2011Q2

REPORT INFORMATION
  Report Type: 
  Country: None (occurrence: None)
  Receive Date: 20110512
  Receipt Date: 20110422
  Transmission Date: 20111010
  Serious: No
  Sender: FDA-Public Use
  Company Number: US-B.I. PHARMACEUTICALS,INC./RIDGEFIELD-2011-BP-07911BP

PATIENT
  Sex: Male

DRUGS (8)
  1. PRADAXA [Suspect]
     Indication: ATRIAL FIBRILLATION
  2. ZETIA [Concomitant]
  3. DIOVAN [Concomitant]
  4. GABAPENTIN [Concomitant]
  5. SIMVASTATIN [Concomitant]
  6. ALPRAZOLAM [Concomitant]
  7. PRADAXA [Suspect]
     Indication: HEART RATE IRREGULAR
  8. METOPROLOL TARTRATE [Concomitant]

REACTIONS (2)
  - MULTI-ORGAN DISORDER [None]
  - HYPERSENSITIVITY [None]
